FAERS Safety Report 4699747-1 (Version None)
Quarter: 2005Q2

REPORT INFORMATION
  Report Type: 
  Country: None (occurrence: None)
  Receive Date: 20050623
  Receipt Date: 20050608
  Transmission Date: 20051028
  Serious: Yes (Hospitalization, Other)
  Sender: FDA-Public Use
  Company Number: 2005-00497

PATIENT
  Age: 65 Year
  Weight: 70 kg

DRUGS (5)
  1. VELCADE [Suspect]
     Indication: MULTIPLE MYELOMA
     Dosage: 2.30 MG, 2/WEEK, IV BOLUS
     Route: 040
     Dates: start: 20050117, end: 20050307
  2. ALLOPURINOL [Concomitant]
  3. UNIPRIL (RAMIPRIL) [Concomitant]
  4. NEORECORMON (EPOETIN BETA) [Concomitant]
  5. ZOFRAN [Concomitant]

REACTIONS (9)
  - BLOOD CREATINE PHOSPHOKINASE INCREASED [None]
  - BLOOD CREATINE PHOSPHOKINASE MB INCREASED [None]
  - CARDIAC DISORDER [None]
  - MUSCLE DISORDER [None]
  - MYOGLOBIN BLOOD INCREASED [None]
  - PAIN IN EXTREMITY [None]
  - PARAESTHESIA [None]
  - RENAL FAILURE [None]
  - TROPONIN INCREASED [None]
